FAERS Safety Report 4867877-7 (Version None)
Quarter: 2005Q4

REPORT INFORMATION
  Report Type: 
  Country: None (occurrence: None)
  Receive Date: 20051227
  Receipt Date: 20051212
  Transmission Date: 20060501
  Serious: Yes (Hospitalization)
  Sender: FDA-Public Use
  Company Number: DEU-2005-0001842

PATIENT
  Age: 46 Year
  Sex: Female
  Weight: 74 kg

DRUGS (6)
  1. PALLADONE [Suspect]
     Indication: FIBROMYALGIA
     Dosage: 8 MG, BID, ORAL
     Route: 048
  2. TRAMUNDIN TROPFEN N (TRAMADOL HYDROCHLORIDE) [Concomitant]
  3. VITAMIN B COMPLEX CAP [Concomitant]
  4. CALCIUM GLUCONATE [Concomitant]
  5. CELEBREX [Concomitant]
  6. MAXALT (TRIZATRIPTAN BENZOATE) [Concomitant]

REACTIONS (2)
  - BLISTER [None]
  - URTICARIA [None]
